FAERS Safety Report 6307250-8 (Version None)
Quarter: 2009Q3

REPORT INFORMATION
  Report Type: 
  Country: None (occurrence: None)
  Receive Date: 20090813
  Receipt Date: 20080204
  Transmission Date: 20100115
  Serious: Yes (Death)
  Sender: FDA-Public Use
  Company Number: US-ASTRAZENECA-2006UW09069

PATIENT
  Age: 566 Month
  Sex: Male
  Weight: 93.9 kg

DRUGS (7)
  1. SEROQUEL [Suspect]
     Indication: SCHIZOPHRENIA
     Route: 048
     Dates: start: 20030201
  2. SEROQUEL [Suspect]
     Dosage: 100 MG - 200 MG
     Route: 048
     Dates: start: 20030209
  3. RISPERDAL [Suspect]
     Indication: SCHIZOPHRENIA
     Dates: start: 19990101
  4. KLONOPIN [Concomitant]
     Route: 048
     Dates: start: 20030209
  5. COGENTIN [Concomitant]
     Route: 048
     Dates: start: 20030209
  6. LITHIUM [Concomitant]
     Dosage: 600 MG - 1200 MG
     Route: 048
     Dates: start: 20030209
  7. ATIVAN [Concomitant]
     Indication: AGITATION
     Dates: start: 20030209

REACTIONS (3)
  - DEATH [None]
  - DIABETES MELLITUS [None]
  - TYPE 2 DIABETES MELLITUS [None]
